FAERS Safety Report 12069380 (Version 1)
Quarter: 2016Q1

REPORT INFORMATION
  Report Type: Report from Study
  Country: US (occurrence: US)
  Receive Date: 20160211
  Receipt Date: 20160211
  Transmission Date: 20160526
  Serious: Yes (Hospitalization)
  Sender: FDA-Public Use
  Company Number: US-SA-2016SA000582

PATIENT
  Age: 45 Year
  Sex: Male

DRUGS (3)
  1. LEMTRADA [Suspect]
     Active Substance: ALEMTUZUMAB
     Indication: MULTIPLE SCLEROSIS
     Route: 041
     Dates: start: 20151214, end: 20151216
  2. AUBAGIO [Concomitant]
     Active Substance: TERIFLUNOMIDE
  3. LEMTRADA [Suspect]
     Active Substance: ALEMTUZUMAB
     Indication: MULTIPLE SCLEROSIS
     Route: 041
     Dates: start: 20141208, end: 20141212

REACTIONS (16)
  - Fatigue [Not Recovered/Not Resolved]
  - Nail injury [Unknown]
  - Asthenia [Unknown]
  - Contusion [Unknown]
  - Erythema [Unknown]
  - Urine abnormality [Unknown]
  - Fall [Unknown]
  - Onychoclasis [Unknown]
  - Joint swelling [Unknown]
  - Cellulitis [Unknown]
  - Pyrexia [Not Recovered/Not Resolved]
  - Heart rate increased [Unknown]
  - Urinary tract infection [Not Recovered/Not Resolved]
  - Dizziness [Unknown]
  - Sepsis [Unknown]
  - Movement disorder [Unknown]

NARRATIVE: CASE EVENT DATE: 20151215
